FAERS Safety Report 25826729 (Version 2)
Quarter: 2025Q4

REPORT INFORMATION
  Report Type: Spontaneous
  Country: EU (occurrence: EU)
  Receive Date: 20250920
  Receipt Date: 20251010
  Transmission Date: 20260118
  Serious: No
  Sender: UCB
  Company Number: EU-UCBSA-2025054931

PATIENT
  Sex: Male

DRUGS (1)
  1. NEUPRO [Suspect]
     Active Substance: ROTIGOTINE
     Indication: Restless legs syndrome
     Dosage: 3 MILLIGRAM, ONCE DAILY (QD)
     Route: 062
     Dates: start: 20250520, end: 20250821

REACTIONS (2)
  - Product adhesion issue [Unknown]
  - Therapeutic product effect incomplete [Unknown]

NARRATIVE: CASE EVENT DATE: 20250101
